FAERS Safety Report 7504384-7 (Version None)
Quarter: 2011Q2

REPORT INFORMATION
  Report Type: 
  Country: None (occurrence: None)
  Receive Date: 20110525
  Receipt Date: 20110518
  Transmission Date: 20111010
  Serious: Yes (Other)
  Sender: FDA-Public Use
  Company Number: US-CEPHALON-2011002469

PATIENT
  Sex: Female
  Weight: 56 kg

DRUGS (2)
  1. NUVIGIL [Suspect]
     Route: 048
     Dates: start: 20110512, end: 20110518
  2. NUVIGIL [Suspect]
     Indication: NARCOLEPSY
     Route: 048
     Dates: start: 20110510, end: 20110511

REACTIONS (2)
  - ANXIETY [None]
  - PANIC ATTACK [None]
